FAERS Safety Report 5671014-9 (Version None)
Quarter: 2008Q1

REPORT INFORMATION
  Report Type: 
  Country: None (occurrence: None)
  Receive Date: 20080318
  Receipt Date: 20080310
  Transmission Date: 20080703
  Serious: Yes (Other)
  Sender: FDA-Public Use
  Company Number: US-ASTRAZENECA-2008UW03679

PATIENT
  Sex: Female

DRUGS (5)
  1. SYMBICORT [Suspect]
     Route: 055
  2. SINGULAIR [Concomitant]
  3. PROAIR HFA [Concomitant]
  4. YASMIN [Concomitant]
  5. LEXAPRO [Concomitant]

REACTIONS (1)
  - DEEP VEIN THROMBOSIS [None]
